FAERS Safety Report 16059402 (Version 4)
Quarter: 2022Q2

REPORT INFORMATION
  Report Type: Spontaneous
  Country: US (occurrence: US)
  Receive Date: 20190311
  Receipt Date: 20220523
  Transmission Date: 20220721
  Serious: Yes (Death, Other)
  Sender: FDA-Public Use
  Company Number: PHEH2019US010245

PATIENT
  Age: 72 Year
  Sex: Male
  Weight: 119.9 kg

DRUGS (1)
  1. KYMRIAH [Suspect]
     Active Substance: TISAGENLECLEUCEL
     Indication: Diffuse large B-cell lymphoma
     Dosage: UNK , ONCE/SINGLE
     Route: 042
     Dates: start: 20181226

REACTIONS (17)
  - Acute respiratory failure [Fatal]
  - Pneumonia [Fatal]
  - Neurotoxicity [Unknown]
  - Cytokine release syndrome [Unknown]
  - Hypoxia [Unknown]
  - Fatigue [Unknown]
  - Pyrexia [Unknown]
  - Pleural effusion [Unknown]
  - Neurological examination abnormal [Recovered/Resolved]
  - Neurological examination abnormal [Recovered/Resolved]
  - Neurological examination abnormal [Recovered/Resolved]
  - Incontinence [Unknown]
  - Memory impairment [Unknown]
  - Aphasia [Unknown]
  - Confusional state [Unknown]
  - Somnolence [Unknown]
  - Tremor [Unknown]

NARRATIVE: CASE EVENT DATE: 20181227
